FAERS Safety Report 16796547 (Version 1)
Quarter: 2019Q3

REPORT INFORMATION
  Report Type: Spontaneous
  Country: US (occurrence: US)
  Receive Date: 20190911
  Receipt Date: 20190911
  Transmission Date: 20191005
  Serious: No
  Sender: FDA-Public Use
  Company Number: US-MERZ NORTH AMERICA, INC.-19MRZ-00356

PATIENT
  Sex: Female

DRUGS (1)
  1. XEOMIN [Suspect]
     Active Substance: INCOBOTULINUMTOXINA
     Indication: SKIN COSMETIC PROCEDURE
     Dosage: 20 UNITS
     Dates: start: 20190828, end: 20190828

REACTIONS (7)
  - Muscle contractions involuntary [Unknown]
  - Headache [Unknown]
  - Tremor [Unknown]
  - Anxiety [Unknown]
  - Muscular weakness [Unknown]
  - Feeling abnormal [Unknown]
  - Fatigue [Unknown]
